FAERS Safety Report 9992429 (Version 2)
Quarter: 2014Q1

REPORT INFORMATION
  Report Type: Spontaneous
  Country: FR (occurrence: FR)
  Receive Date: 20140310
  Receipt Date: 20140310
  Transmission Date: 20141002
  Serious: Yes (Other)
  Sender: FDA-Public Use
  Company Number: FR-JNJFOC-20140206637

PATIENT
  Age: 51 Year
  Sex: Female
  Weight: 155 kg

DRUGS (4)
  1. SIMPONI [Suspect]
     Indication: PSORIATIC ARTHROPATHY
     Route: 058
     Dates: start: 201210, end: 201301
  2. CELEBREX [Concomitant]
     Indication: PSORIATIC ARTHROPATHY
     Route: 048
     Dates: start: 2006
  3. RAMIPRIL [Concomitant]
     Indication: HYPERTENSION
     Route: 065
  4. PULMICORT [Concomitant]
     Indication: BRONCHITIS CHRONIC
     Route: 065

REACTIONS (2)
  - Psoriasis [Recovering/Resolving]
  - Paradoxical drug reaction [Recovering/Resolving]
